FAERS Safety Report 7812389-1 (Version None)
Quarter: 2011Q4

REPORT INFORMATION
  Report Type: 
  Country: None (occurrence: None)
  Receive Date: 20111013
  Receipt Date: 20110927
  Transmission Date: 20120403
  Serious: Yes (Hospitalization)
  Sender: FDA-Public Use
  Company Number: PHHO2010DE10296

PATIENT
  Sex: Male
  Weight: 54 kg

DRUGS (2)
  1. EVEROLIMUS [Suspect]
     Indication: LIVER TRANSPLANT
     Dosage: UNK
     Route: 048
     Dates: start: 20091215, end: 20100420
  2. TACROLIMUS [Suspect]
     Indication: LIVER TRANSPLANT
     Dosage: 0.5 MG, UNK
     Route: 048
     Dates: start: 20091119, end: 20100420

REACTIONS (3)
  - LIVER ABSCESS [None]
  - HEPATIC ARTERY STENOSIS [None]
  - BILIARY ISCHAEMIA [None]
